FAERS Safety Report 14180965 (Version 1)
Quarter: 2017Q4

REPORT INFORMATION
  Report Type: Spontaneous
  Country: US (occurrence: None)
  Receive Date: 20171110
  Receipt Date: 20171110
  Transmission Date: 20180321
  Serious: No
  Sender: FDA-Public Use
  Company Number: None

PATIENT
  Age: 22 Year
  Sex: Female

DRUGS (1)
  1. REMICADE [Suspect]
     Active Substance: INFLIXIMAB

REACTIONS (6)
  - Throat tightness [None]
  - Anxiety [None]
  - Feeling hot [None]
  - Drug dose omission [None]
  - Chest pain [None]
  - Flushing [None]

NARRATIVE: CASE EVENT DATE: 20171110
